FAERS Safety Report 7066371-5 (Version None)
Quarter: 2010Q4

REPORT INFORMATION
  Report Type: 
  Country: None (occurrence: None)
  Receive Date: 20101027
  Receipt Date: 20100119
  Transmission Date: 20110411
  Serious: No
  Sender: FDA-Public Use
  Company Number: US-WYE-H13093910

PATIENT
  Sex: Female
  Weight: 68.1 kg

DRUGS (2)
  1. PREMPRO [Suspect]
     Indication: HORMONE REPLACEMENT THERAPY
     Dosage: 0.625 MG /2.5 MG, FREQUENCY NOT SPECIFIED
     Route: 048
     Dates: start: 19950101
  2. PREMARIN [Suspect]

REACTIONS (1)
  - METRORRHAGIA [None]
